FAERS Safety Report 9513779 (Version 3)
Quarter: 2014Q1

REPORT INFORMATION
  Report Type: Spontaneous
  Country: JP (occurrence: JP)
  Receive Date: 20130910
  Receipt Date: 20140224
  Transmission Date: 20141002
  Serious: Yes (Other)
  Sender: FDA-Public Use
  Company Number: PHHY2013JP091927

PATIENT
  Age: 26 Year
  Sex: Male
  Weight: 69 kg

DRUGS (2)
  1. NEORAL [Suspect]
     Indication: IMMUNOSUPPRESSION
     Dosage: 200 MG, UNK
     Route: 048
     Dates: start: 20111122
  2. ENARMON//TESTOSTERONE ENANTHATE [Concomitant]
     Dosage: 250 MG, UNK
     Route: 030
     Dates: start: 20120928

REACTIONS (7)
  - Secondary adrenocortical insufficiency [Recovering/Resolving]
  - Hypopituitarism [Recovering/Resolving]
  - Dyslipidaemia [Recovering/Resolving]
  - Hyperuricaemia [Not Recovered/Not Resolved]
  - Renal impairment [Not Recovered/Not Resolved]
  - Nausea [Recovering/Resolving]
  - Malaise [Recovering/Resolving]
